FAERS Safety Report 22591124 (Version 1)
Quarter: 2023Q2

REPORT INFORMATION
  Report Type: Spontaneous
  Country: US (occurrence: US)
  Receive Date: 20230612
  Receipt Date: 20230612
  Transmission Date: 20230721
  Serious: Yes (Death, Life-Threatening, Other)
  Sender: FDA-Public Use
  Company Number: US-GILEAD-2023-0632143

PATIENT
  Age: 35 Year
  Sex: Male

DRUGS (1)
  1. TECARTUS [Suspect]
     Active Substance: BREXUCABTAGENE AUTOLEUCEL
     Indication: B-cell type acute leukaemia
     Dosage: UNK
     Route: 042
     Dates: start: 20230405, end: 20230405

REACTIONS (11)
  - Aspergillus infection [Fatal]
  - Immune effector cell-associated neurotoxicity syndrome [Unknown]
  - Cytokine release syndrome [Recovered/Resolved]
  - Cytokine release syndrome [Unknown]
  - Tachycardia [Unknown]
  - Alanine aminotransferase abnormal [Unknown]
  - Aspartate aminotransferase increased [Unknown]
  - Fatigue [Unknown]
  - Diarrhoea [Unknown]
  - Tachypnoea [Unknown]
  - Hypofibrinogenaemia [Unknown]

NARRATIVE: CASE EVENT DATE: 20230407
